FAERS Safety Report 5278500-4 (Version None)
Quarter: 2007Q1

REPORT INFORMATION
  Report Type: 
  Country: None (occurrence: None)
  Receive Date: 20070328
  Receipt Date: 20070321
  Transmission Date: 20070707
  Serious: Yes (Other)
  Sender: FDA-Public Use
  Company Number: 2006UW05550

PATIENT
  Age: 85 Year
  Sex: Female
  Weight: 70.3 kg

DRUGS (4)
  1. TOPROL-XL [Suspect]
     Indication: HYPERTENSION
     Route: 048
     Dates: start: 20040101, end: 20060901
  2. TOPROL-XL [Suspect]
     Route: 048
     Dates: start: 20060901
  3. BENICAR [Concomitant]
  4. WATER PILL [Concomitant]

REACTIONS (7)
  - CATARACT [None]
  - CATARACT OPERATION COMPLICATION [None]
  - EXTRASYSTOLES [None]
  - HEART RATE IRREGULAR [None]
  - PALPITATIONS [None]
  - SLEEP DISORDER [None]
  - SOMATIC DELUSION [None]
